FAERS Safety Report 7261792-X (Version None)
Quarter: 2011Q1

REPORT INFORMATION
  Report Type: 
  Country: None (occurrence: None)
  Receive Date: 20110130
  Receipt Date: 20101130
  Transmission Date: 20110831
  Serious: No
  Sender: FDA-Public Use
  Company Number: US-ABBOTT-10P-163-0688506-00

PATIENT
  Age: 66 Year
  Sex: Female

DRUGS (7)
  1. HUMIRA [Suspect]
  2. OXYBUTYNIN [Concomitant]
     Indication: URINARY INCONTINENCE
  3. TRAMADOL HCL [Concomitant]
     Indication: BACK PAIN
  4. HUMIRA [Suspect]
     Indication: PSORIASIS
     Dates: start: 20100726
  5. FLONASE [Concomitant]
     Indication: SINUSITIS
     Dosage: ONE SPRAY EACH NOSTRIL
  6. TRAMADOL HCL [Concomitant]
     Indication: NECK PAIN
  7. TIZANIDINE [Concomitant]
     Indication: MUSCLE RELAXANT THERAPY

REACTIONS (3)
  - THERAPY REGIMEN CHANGED [None]
  - PSORIASIS [None]
  - DRUG INEFFECTIVE [None]
